FAERS Safety Report 6300950-5 (Version None)
Quarter: 2009Q3

REPORT INFORMATION
  Report Type: 
  Country: None (occurrence: None)
  Receive Date: 20090807
  Receipt Date: 20070517
  Transmission Date: 20100115
  Serious: Yes (Other)
  Sender: FDA-Public Use
  Company Number: US-ASTRAZENECA-2006UW22859

PATIENT
  Age: 38 Year
  Sex: Male
  Weight: 80.9 kg

DRUGS (17)
  1. SEROQUEL [Suspect]
     Indication: INSOMNIA
     Route: 048
     Dates: start: 20011001, end: 20060201
  2. SEROQUEL [Suspect]
     Indication: ANXIETY
     Route: 048
     Dates: start: 20011001, end: 20060201
  3. SEROQUEL [Suspect]
     Indication: DEPRESSION
     Route: 048
     Dates: start: 20011001, end: 20060201
  4. SEROQUEL [Suspect]
     Dosage: 100MG -200MG
     Route: 048
     Dates: start: 20041101
  5. SEROQUEL [Suspect]
     Dosage: 100MG -200MG
     Route: 048
     Dates: start: 20041101
  6. SEROQUEL [Suspect]
     Dosage: 100MG -200MG
     Route: 048
     Dates: start: 20041101
  7. CRACK COCAINE [Concomitant]
     Dates: start: 20060701, end: 20060901
  8. BENTYL [Concomitant]
     Indication: ABDOMINAL DISTENSION
     Dates: start: 20050531
  9. ABILIFY [Concomitant]
     Dates: start: 20051031
  10. ALBUTEROL [Concomitant]
     Indication: BRONCHITIS
     Dates: start: 20060228
  11. AMBIEN [Concomitant]
     Indication: SLEEP DISORDER
     Dates: start: 19980317
  12. LEVSIN [Concomitant]
     Indication: GASTROINTESTINAL HYPERMOTILITY
     Route: 060
     Dates: start: 20041101
  13. LEVSIN [Concomitant]
     Indication: RASH
     Route: 060
     Dates: start: 20041101
  14. CLONAZEPAM [Concomitant]
     Dates: start: 20051031
  15. NORVIR [Concomitant]
     Route: 048
     Dates: start: 20041101
  16. ZIAGEN [Concomitant]
     Route: 048
     Dates: start: 20041101
  17. ZIAGEN [Concomitant]
     Route: 048
     Dates: start: 20050801

REACTIONS (6)
  - DIABETES MELLITUS [None]
  - DIABETES MELLITUS INADEQUATE CONTROL [None]
  - PANCREATITIS [None]
  - PANCREATITIS ACUTE [None]
  - PANCREATITIS CHRONIC [None]
  - TYPE 2 DIABETES MELLITUS [None]
